FAERS Safety Report 14567280 (Version 1)
Quarter: 2018Q1

REPORT INFORMATION
  Report Type: Spontaneous
  Country: US (occurrence: US)
  Receive Date: 20180223
  Receipt Date: 20180223
  Transmission Date: 20180509
  Serious: Yes (Hospitalization, Other)
  Sender: FDA-Public Use
  Company Number: US-AUROBINDO-AUR-APL-2018-008640

PATIENT
  Age: 56 Year
  Sex: Male
  Weight: 62 kg

DRUGS (7)
  1. CASPOFUNGIN [Concomitant]
     Active Substance: CASPOFUNGIN
     Indication: ANTIFUNGAL PROPHYLAXIS
     Dosage: 50 MG, DAILY
  2. VORICONAZOLE. [Suspect]
     Active Substance: VORICONAZOLE
     Indication: ANTIFUNGAL PROPHYLAXIS
     Dosage: 200 MG, TWO TIMES A DAY
     Route: 048
  3. VORICONAZOLE. [Interacting]
     Active Substance: VORICONAZOLE
     Dosage: 4 MG/KG, TWO TIMES A DAY
     Route: 042
  4. CEFEPIME [Concomitant]
     Active Substance: CEFEPIME HYDROCHLORIDE
     Indication: ANTIFUNGAL PROPHYLAXIS
  5. AMPHOTERICIN B. [Concomitant]
     Active Substance: AMPHOTERICIN B
     Indication: ANTIFUNGAL PROPHYLAXIS
  6. VORICONAZOLE. [Interacting]
     Active Substance: VORICONAZOLE
     Indication: ANTIFUNGAL PROPHYLAXIS
     Dosage: 6 MG/KG, TWO LOADING DOSES
     Route: 042
  7. POSACONAZOLE [Interacting]
     Active Substance: POSACONAZOLE
     Indication: ANTIFUNGAL PROPHYLAXIS
     Dosage: 300 MG, DAILY
     Route: 048

REACTIONS (5)
  - Mental status changes [Recovered/Resolved]
  - Toxicity to various agents [Recovered/Resolved]
  - Cellulitis [Unknown]
  - Metabolic encephalopathy [Recovered/Resolved]
  - Swelling face [Unknown]

NARRATIVE: CASE EVENT DATE: 201611
